FAERS Safety Report 8492940-1 (Version None)
Quarter: 2012Q3

REPORT INFORMATION
  Report Type: 
  Country: None (occurrence: None)
  Receive Date: 20120706
  Receipt Date: 20120703
  Transmission Date: 20120928
  Serious: Yes (Other)
  Sender: FDA-Public Use
  Company Number: ZA-GLAXOSMITHKLINE-B0773003A

PATIENT
  Age: 49 Year
  Sex: Female

DRUGS (2)
  1. TOPIRAMATE [Concomitant]
     Dosage: 75MG AT NIGHT
  2. WELLBUTRIN SR [Suspect]
     Indication: COMPLICATED MIGRAINE
     Dosage: 150MG IN THE MORNING
     Dates: start: 20110615

REACTIONS (7)
  - ABDOMINAL RIGIDITY [None]
  - CONSTIPATION [None]
  - DECREASED APPETITE [None]
  - NAUSEA [None]
  - ABDOMINAL DISTENSION [None]
  - BURNING SENSATION [None]
  - ABDOMINAL PAIN [None]
